FAERS Safety Report 6581936-2 (Version None)
Quarter: 2010Q1

REPORT INFORMATION
  Report Type: 
  Country: None (occurrence: None)
  Receive Date: 20100215
  Receipt Date: 20100202
  Transmission Date: 20100710
  Serious: Yes (Other)
  Sender: FDA-Public Use
  Company Number: US-ELI_LILLY_AND_COMPANY-US201002001183

PATIENT
  Age: 62 Year
  Sex: Male

DRUGS (4)
  1. BYETTA [Suspect]
     Indication: TYPE 2 DIABETES MELLITUS
     Dosage: UNK, UNKNOWN
  2. ZANTAC [Concomitant]
  3. SIMCOR [Concomitant]
  4. PLAVIX [Concomitant]

REACTIONS (2)
  - FLANK PAIN [None]
  - PANCREATITIS [None]
